FAERS Safety Report 8573575 (Version 4)
Quarter: 2013Q3

REPORT INFORMATION
  Report Type: Report from Study
  Country: US (occurrence: US)
  Receive Date: 20120522
  Receipt Date: 20130909
  Transmission Date: 20140515
  Serious: Yes (Hospitalization)
  Sender: FDA-Public Use
  Company Number: US-ELI_LILLY_AND_COMPANY-US201204009253

PATIENT
  Age: 72 Year
  Sex: Male

DRUGS (11)
  1. TERIPARATIDE [Suspect]
     Indication: OSTEOPOROSIS
     Dosage: 20 UG, QD
     Route: 058
     Dates: start: 20120308
  2. TERIPARATIDE [Suspect]
     Dosage: 20 UG, QD
     Route: 058
  3. TERIPARATIDE [Suspect]
     Dosage: 20 UG, QD
     Route: 058
  4. TERIPARATIDE [Suspect]
     Dosage: 20 UG, QD
     Route: 058
     Dates: end: 20120606
  5. TERIPARATIDE [Suspect]
     Dosage: 20 UG, QD
     Route: 058
     Dates: start: 20120727, end: 20120828
  6. MULTAQ [Concomitant]
  7. WARFARIN [Concomitant]
  8. DILTIAZEM [Concomitant]
     Dosage: 180 MG, UNK
  9. RANITIDINE [Concomitant]
     Dosage: UNK, TID
  10. FUROSEMIDE [Concomitant]
  11. HYDROCODONE [Concomitant]

REACTIONS (6)
  - Compression fracture [Unknown]
  - Back pain [Not Recovered/Not Resolved]
  - Rash [Not Recovered/Not Resolved]
  - Pruritus [Recovered/Resolved]
  - Dermatitis [Unknown]
  - Rash generalised [Recovering/Resolving]
